FAERS Safety Report 4631599-8 (Version None)
Quarter: 2005Q2

REPORT INFORMATION
  Report Type: 
  Country: None (occurrence: None)
  Receive Date: 20050407
  Receipt Date: 20050331
  Transmission Date: 20051028
  Serious: Yes (Death, Other)
  Sender: FDA-Public Use
  Company Number: 200510429GDS

PATIENT
  Age: 78 Year
  Sex: Female

DRUGS (5)
  1. AVELOX [Suspect]
     Indication: PNEUMONIA
     Dosage: INTRAVENOUS
     Route: 042
     Dates: start: 20050111
  2. AVELOX [Suspect]
     Indication: PNEUMONIA
     Dosage: NI, UNK
     Route: 065
     Dates: end: 20050119
  3. TAMBOCOR [Suspect]
     Dosage: NI, UNK
     Route: 065
  4. SERETIDE [Concomitant]
  5. SPIRIVA [Concomitant]

REACTIONS (27)
  - ANEURYSM [None]
  - ASPARTATE AMINOTRANSFERASE INCREASED [None]
  - ATRIAL FIBRILLATION [None]
  - BLOOD ALBUMIN DECREASED [None]
  - BLOOD CALCIUM DECREASED [None]
  - BLOOD GLUCOSE INCREASED [None]
  - BLOOD LACTATE DEHYDROGENASE INCREASED [None]
  - BLOOD POTASSIUM DECREASED [None]
  - C-REACTIVE PROTEIN INCREASED [None]
  - CARDIAC ARREST [None]
  - CIRCULATORY COLLAPSE [None]
  - CONDUCTION DISORDER [None]
  - DILATATION ATRIAL [None]
  - DILATATION VENTRICULAR [None]
  - DRUG INTERACTION [None]
  - ELECTROCARDIOGRAM QT PROLONGED [None]
  - HAEMATOCRIT DECREASED [None]
  - HAEMOGLOBIN DECREASED [None]
  - MITRAL VALVE INCOMPETENCE [None]
  - NERVOUS SYSTEM DISORDER [None]
  - PLATELET COUNT INCREASED [None]
  - PO2 INCREASED [None]
  - TORSADE DE POINTES [None]
  - TRICUSPID VALVE INCOMPETENCE [None]
  - VASODILATATION [None]
  - VENTRICULAR FIBRILLATION [None]
  - WHITE BLOOD CELL COUNT INCREASED [None]
